FAERS Safety Report 16446175 (Version 1)
Quarter: 2019Q2

REPORT INFORMATION
  Report Type: Report from Study
  Country: CA (occurrence: CA)
  Receive Date: 20190618
  Receipt Date: 20190618
  Transmission Date: 20190711
  Serious: Yes (Other)
  Sender: FDA-Public Use
  Company Number: CA-GLAXOSMITHKLINE-CA2019GSK107023

PATIENT
  Age: 60 Year
  Sex: Female

DRUGS (2)
  1. BREO ELLIPTA [Suspect]
     Active Substance: FLUTICASONE FUROATE\VILANTEROL TRIFENATATE
     Indication: PRODUCT USED FOR UNKNOWN INDICATION
     Dosage: UNK
  2. SALBUTAMOL SULPHATE [Suspect]
     Active Substance: ALBUTEROL SULFATE
     Indication: PRODUCT USED FOR UNKNOWN INDICATION
     Dosage: UNK

REACTIONS (8)
  - Lung neoplasm malignant [Unknown]
  - Brain neoplasm [Unknown]
  - Metastases to central nervous system [Unknown]
  - Pneumothorax [Unknown]
  - Intestinal obstruction [Unknown]
  - Rib fracture [Unknown]
  - Necrosis [Unknown]
  - Lung perforation [Unknown]

NARRATIVE: CASE EVENT DATE: 201701
